FAERS Safety Report 24449316 (Version 1)
Quarter: 2024Q4

REPORT INFORMATION
  Report Type: Spontaneous
  Country: FR (occurrence: FR)
  Receive Date: 20241017
  Receipt Date: 20241017
  Transmission Date: 20250114
  Serious: Yes (Other)
  Sender: RANBAXY
  Company Number: FR-SUN PHARMACEUTICAL INDUSTRIES LTD-2024RR-473046

PATIENT
  Age: 2 Month
  Sex: Female

DRUGS (5)
  1. METOPROLOL [Suspect]
     Active Substance: METOPROLOL
     Indication: Cardiomyopathy
     Dosage: 50 MG 2X/D INCREASED TO 100 MG 2X/D
     Route: 064
     Dates: start: 20231226, end: 20240523
  2. TRANDATE [Suspect]
     Active Substance: LABETALOL HYDROCHLORIDE
     Indication: Hypertension
     Dosage: 100 MILLIGRAM, DAILY
     Route: 064
     Dates: start: 20231201, end: 20231226
  3. ALDOMET [Suspect]
     Active Substance: METHYLDOPA
     Indication: Hypertension
     Dosage: 750 MILLIGRAM, DAILY
     Route: 064
     Dates: start: 20240104, end: 20240523
  4. NICARDIPINE HYDROCHLORIDE [Suspect]
     Active Substance: NICARDIPINE HYDROCHLORIDE
     Indication: Hypertension
     Dosage: 100 MILLIGRAM, DAILY
     Route: 064
     Dates: start: 20240213, end: 20240523
  5. KARDEGIC [Suspect]
     Active Substance: ASPIRIN DL-LYSINE
     Indication: Foetal growth restriction
     Dosage: 100 MILLIGRAM, DAILY
     Route: 064
     Dates: start: 20231201, end: 20240523

REACTIONS (2)
  - Foetal growth restriction [Recovering/Resolving]
  - Maternal exposure during pregnancy [Recovered/Resolved]

NARRATIVE: CASE EVENT DATE: 20231201
